FAERS Safety Report 14967252 (Version 1)
Quarter: 2018Q2

REPORT INFORMATION
  Report Type: Report from Study
  Country: CN (occurrence: CN)
  Receive Date: 20180604
  Receipt Date: 20180604
  Transmission Date: 20180711
  Serious: No
  Sender: FDA-Public Use
  Company Number: CN-CHEPLA-C20170801

PATIENT

DRUGS (2)
  1. ATRA (ALL-TRANS RETINOIC ACID) [Suspect]
     Active Substance: TRETINOIN
     Indication: IMMUNE THROMBOCYTOPENIC PURPURA
     Dosage: REGIME #2: 10 MG TWICE DAILY; TREATMENT WITH TRETINOIN AND PREDNISONE IN COMBINATION
  2. PREDNISONE. [Concomitant]
     Active Substance: PREDNISONE
     Indication: IMMUNE THROMBOCYTOPENIC PURPURA
     Dosage: DAILY DOSE OF 15-30 MG; TREATMENT WITH PREDNISONE AND TRETINOIN IN COMBINATION

REACTIONS (7)
  - Lip dry [Unknown]
  - Headache [Unknown]
  - Skin infection [Unknown]
  - Vomiting [Unknown]
  - Dry mouth [Unknown]
  - Product use in unapproved indication [Unknown]
  - Nausea [Unknown]
